FAERS Safety Report 23727768 (Version 1)
Quarter: 2024Q2

REPORT INFORMATION
  Report Type: Spontaneous
  Country: EG (occurrence: EG)
  Receive Date: 20240410
  Receipt Date: 20240410
  Transmission Date: 20240716
  Serious: Yes (Other)
  Sender: FDA-Public Use
  Company Number: EG-HIKMA PHARMACEUTICALS-EG-H14001-24-02827

PATIENT

DRUGS (2)
  1. DOCETAXEL [Suspect]
     Active Substance: DOCETAXEL\DOCETAXEL ANHYDROUS
     Indication: Breast cancer
     Dosage: 130 MG DILUTED IN 500 ML NORMAL SALINE OVER 1 H, EVERY 21 DAYS
     Route: 065
     Dates: start: 20231228
  2. DOCETAXEL [Suspect]
     Active Substance: DOCETAXEL\DOCETAXEL ANHYDROUS
     Dosage: 75 MG DILUTED IN 500 ML NORMAL SALINE OVER 1 H, EVERY 21 DAYS
     Route: 065

REACTIONS (4)
  - Nephropathy [Unknown]
  - Pain in extremity [Unknown]
  - Walking disability [Unknown]
  - Toxicity to various agents [Unknown]

NARRATIVE: CASE EVENT DATE: 20240118
